FAERS Safety Report 7785729-X (Version None)
Quarter: 2011Q3

REPORT INFORMATION
  Report Type: 
  Country: None (occurrence: None)
  Receive Date: 20110929
  Receipt Date: 20110921
  Transmission Date: 20111222
  Serious: Yes (Hospitalization, Other)
  Sender: FDA-Public Use
  Company Number: KR-ASTELLAS-2011JP006778

PATIENT
  Age: 61 Year
  Sex: Male

DRUGS (11)
  1. MICAFUNGIN [Concomitant]
     Indication: INFECTION PROPHYLAXIS
     Route: 065
  2. DECITABINE [Concomitant]
     Route: 065
  3. ANTI-THYMOCYTE GLOBULIN NOS [Concomitant]
     Indication: PROPHYLAXIS AGAINST GRAFT VERSUS HOST DISEASE
     Dosage: 1.25 MG/KG, UNKNOWN/D
     Route: 065
  4. METHYLPREDNISOLONE [Concomitant]
     Indication: ACUTE GRAFT VERSUS HOST DISEASE IN INTESTINE
     Route: 065
  5. SULFAMETHOXAZOLE AND TRIMETHOPRIM [Concomitant]
     Indication: INFECTION PROPHYLAXIS
     Route: 065
  6. MELPHALAN HYDROCHLORIDE [Concomitant]
     Dosage: 50 MG/M2, UNKNOWN/D
     Route: 065
  7. TACROLIMUS [Suspect]
     Indication: PROPHYLAXIS AGAINST GRAFT VERSUS HOST DISEASE
     Route: 065
  8. MYCOPHENOLATE MOFETIL [Suspect]
     Indication: PROPHYLAXIS AGAINST GRAFT VERSUS HOST DISEASE
     Route: 065
  9. FLUDARABINE PHOSPHATE [Concomitant]
     Dosage: 15 MG/M2, UNKNOWN/D
     Route: 065
  10. ANTI-THYMOCYTE GLOBULIN NOS [Concomitant]
     Indication: ACUTE GRAFT VERSUS HOST DISEASE IN INTESTINE
     Route: 065
  11. ACYCLOVIR [Concomitant]
     Indication: INFECTION PROPHYLAXIS
     Route: 065

REACTIONS (4)
  - EPSTEIN-BARR VIRUS TEST POSITIVE [None]
  - HISTIOCYTOSIS HAEMATOPHAGIC [None]
  - ACUTE GRAFT VERSUS HOST DISEASE IN INTESTINE [None]
  - DRUG INEFFECTIVE [None]
